FAERS Safety Report 25767679 (Version 1)
Quarter: 2025Q3

REPORT INFORMATION
  Report Type: Spontaneous
  Country: CN (occurrence: CN)
  Receive Date: 20250905
  Receipt Date: 20250905
  Transmission Date: 20251021
  Serious: Yes (Other)
  Sender: ELI LILLY AND COMPANY
  Company Number: CN-ELI_LILLY_AND_COMPANY-CN202509000981

PATIENT
  Age: 37 Year
  Sex: Female
  Weight: 68 kg

DRUGS (3)
  1. ABEMACICLIB [Suspect]
     Active Substance: ABEMACICLIB
     Indication: Breast cancer
     Dosage: 1 DOSAGE FORM, BID
     Route: 048
     Dates: start: 20250722
  2. TAMOXIFEN CITRATE [Suspect]
     Active Substance: TAMOXIFEN CITRATE
     Indication: Breast cancer
     Dosage: 1 DOSAGE FORM, BID
     Route: 048
     Dates: start: 20250722
  3. GOSERELIN [Suspect]
     Active Substance: GOSERELIN
     Indication: Breast cancer
     Dosage: 3.6 MG, DAILY
     Route: 058
     Dates: start: 20250722

REACTIONS (6)
  - Erythema [Recovering/Resolving]
  - Rash erythematous [Recovering/Resolving]
  - Pruritus [Recovered/Resolved]
  - Papule [Recovering/Resolving]
  - Scratch [Recovering/Resolving]
  - Dermatitis [Recovering/Resolving]

NARRATIVE: CASE EVENT DATE: 20250821
